FAERS Safety Report 22288957 (Version 14)
Quarter: 2025Q2

REPORT INFORMATION
  Report Type: Report from Study
  Country: FR (occurrence: FR)
  Receive Date: 20230505
  Receipt Date: 20250526
  Transmission Date: 20250717
  Serious: Yes (Hospitalization, Other)
  Sender: EXELIXIS
  Company Number: FR-KOREA IPSEN Pharma-2023-09797

PATIENT

DRUGS (19)
  1. CABOZANTINIB [Suspect]
     Active Substance: CABOZANTINIB
     Indication: Renal cell carcinoma
     Dosage: 40 MG DAILY
     Route: 048
     Dates: start: 20230223, end: 20230313
  2. CABOZANTINIB [Suspect]
     Active Substance: CABOZANTINIB
     Dosage: 40 MG DAILY
     Route: 048
     Dates: start: 20230315, end: 20230419
  3. CABOZANTINIB [Suspect]
     Active Substance: CABOZANTINIB
     Dosage: 40 MG DAILY
     Route: 048
     Dates: start: 20230428, end: 20230504
  4. CABOZANTINIB [Suspect]
     Active Substance: CABOZANTINIB
     Dosage: 40 MG DAILY
     Route: 048
     Dates: start: 20230527, end: 20230621
  5. CABOZANTINIB [Suspect]
     Active Substance: CABOZANTINIB
     Dosage: 20 MG DAILY
     Route: 048
     Dates: start: 20230807, end: 20240104
  6. CABOZANTINIB [Suspect]
     Active Substance: CABOZANTINIB
     Dosage: 20 MG DAILY
     Route: 048
     Dates: start: 20240205, end: 20240329
  7. NIVOLUMAB [Suspect]
     Active Substance: NIVOLUMAB
     Indication: Renal cell carcinoma
     Route: 042
     Dates: start: 20230223
  8. NIVOLUMAB [Suspect]
     Active Substance: NIVOLUMAB
     Route: 042
     Dates: start: 20230323
  9. NIVOLUMAB [Suspect]
     Active Substance: NIVOLUMAB
     Route: 042
     Dates: start: 20230420
  10. SOTALOL HYDROCHLORIDE [Concomitant]
     Active Substance: SOTALOL HYDROCHLORIDE
     Indication: Arrhythmia
     Route: 048
     Dates: start: 2013
  11. DUTASTERIDE\TAMSULOSIN [Concomitant]
     Active Substance: DUTASTERIDE\TAMSULOSIN
     Indication: Prostatic adenoma
     Route: 048
     Dates: start: 2023
  12. OFLOXACIN [Concomitant]
     Active Substance: OFLOXACIN
     Indication: Infection
     Route: 048
     Dates: start: 20230314, end: 20230329
  13. FLUOXETINE [Concomitant]
     Active Substance: FLUOXETINE HYDROCHLORIDE
     Indication: Depression
     Route: 048
     Dates: start: 202303, end: 202307
  14. XANAX [Concomitant]
     Active Substance: ALPRAZOLAM
     Indication: Anxiety
     Route: 048
     Dates: start: 20230223
  15. DOLIPRANE [Concomitant]
     Active Substance: ACETAMINOPHEN
     Indication: Pain
     Route: 048
     Dates: start: 20230223
  16. POLYETHYLENE GLYCOLS [Concomitant]
     Active Substance: POLYETHYLENE GLYCOLS
     Indication: Constipation
     Route: 048
     Dates: start: 20230323
  17. OMEPRAZOLE [Concomitant]
     Active Substance: OMEPRAZOLE
     Indication: Abdominal pain upper
     Route: 048
     Dates: start: 20230323, end: 202304
  18. BACTRIM [Concomitant]
     Active Substance: SULFAMETHOXAZOLE\TRIMETHOPRIM
     Indication: Urinary tract infection
     Route: 048
     Dates: start: 20230715, end: 20230805
  19. CEFIXIME [Concomitant]
     Active Substance: CEFIXIME
     Indication: Urinary tract infection
     Route: 048
     Dates: start: 20240210, end: 20240217

REACTIONS (6)
  - Hepatic cytolysis [Recovered/Resolved]
  - Haematuria [Recovered/Resolved]
  - Skin fissures [Recovered/Resolved]
  - Fatigue [Recovered/Resolved]
  - Fatigue [Not Recovered/Not Resolved]
  - Purpura [Recovered/Resolved]

NARRATIVE: CASE EVENT DATE: 20230325
